FAERS Safety Report 6712066-4 (Version None)
Quarter: 2010Q2

REPORT INFORMATION
  Report Type: 
  Country: None (occurrence: None)
  Receive Date: 20100505
  Receipt Date: 20100422
  Transmission Date: 20101027
  Serious: Yes (Other)
  Sender: FDA-Public Use
  Company Number: PHHY2010DE26102

PATIENT
  Sex: Female

DRUGS (1)
  1. DAFIRO HCT [Suspect]
     Dosage: 1 TABLET PER DAY
     Route: 048
     Dates: start: 20100201

REACTIONS (5)
  - CHEST DISCOMFORT [None]
  - ENDOMETRIAL HYPERTROPHY [None]
  - NAUSEA [None]
  - UTERINE POLYP [None]
  - UTERINE POLYPECTOMY [None]
